FAERS Safety Report 20416343 (Version 1)
Quarter: 2022Q1

REPORT INFORMATION
  Report Type: Spontaneous
  Country: US (occurrence: None)
  Receive Date: 20220202
  Receipt Date: 20220202
  Transmission Date: 20220423
  Serious: Yes (Hospitalization)
  Sender: FDA-Public Use
  Company Number: None

PATIENT
  Age: 46 Year
  Sex: Female
  Weight: 71 kg

DRUGS (3)
  1. LOMUSTINE [Suspect]
     Active Substance: LOMUSTINE
     Indication: Product used for unknown indication
     Dates: end: 20220103
  2. PROCARBAZINE [Suspect]
     Active Substance: PROCARBAZINE
     Indication: Product used for unknown indication
     Dates: end: 20220123
  3. VINCRISTINE SULFATE [Suspect]
     Active Substance: VINCRISTINE SULFATE
     Indication: Product used for unknown indication
     Dates: end: 20220110

REACTIONS (9)
  - Neutropenia [None]
  - Thrombocytopenia [None]
  - Rectal haemorrhage [None]
  - Abdominal pain [None]
  - Nausea [None]
  - Platelet transfusion [None]
  - Rash pruritic [None]
  - Rash [None]
  - Rash [None]

NARRATIVE: CASE EVENT DATE: 20220125
